FAERS Safety Report 8438722-8 (Version None)
Quarter: 2012Q2

REPORT INFORMATION
  Report Type: 
  Country: None (occurrence: None)
  Receive Date: 20120611
  Receipt Date: 20120611
  Transmission Date: 20120825
  Serious: Yes (Hospitalization)
  Sender: FDA-Public Use
  Company Number: None

PATIENT
  Sex: Male
  Weight: 57.7 kg

DRUGS (2)
  1. RISPERIDONE [Suspect]
     Indication: BIPOLAR DISORDER
     Dosage: 2 MG Q PM PO
     Route: 048
     Dates: start: 20120606, end: 20120607
  2. RISPERIDONE [Suspect]
     Indication: ATTENTION DEFICIT/HYPERACTIVITY DISORDER
     Dosage: 2 MG Q PM PO
     Route: 048
     Dates: start: 20120606, end: 20120607

REACTIONS (5)
  - SWELLING FACE [None]
  - DYSPNOEA [None]
  - MUSCLE TIGHTNESS [None]
  - EYE MOVEMENT DISORDER [None]
  - MUSCLE CONTRACTIONS INVOLUNTARY [None]
